FAERS Safety Report 4356707-8 (Version None)
Quarter: 2004Q2

REPORT INFORMATION
  Report Type: 
  Country: None (occurrence: None)
  Receive Date: 20040507
  Receipt Date: 20040428
  Transmission Date: 20050107
  Serious: Yes (Hospitalization)
  Sender: FDA-Public Use
  Company Number: 200403657

PATIENT
  Age: 1 Year
  Sex: Male
  Weight: 10.5 kg

DRUGS (2)
  1. IBUPROFEN [Suspect]
     Dosage: 50 MG, MAX 6 DOSES/DAY
  2. ACETAMINOPHEN [Concomitant]

REACTIONS (9)
  - BRONCHIOLITIS [None]
  - DEHYDRATION [None]
  - DIALYSIS [None]
  - HYPERKALAEMIA [None]
  - RENAL CORTICAL NECROSIS [None]
  - RENAL FAILURE ACUTE [None]
  - SOMNOLENCE [None]
  - TACHYPNOEA [None]
  - ULTRASOUND KIDNEY ABNORMAL [None]
